FAERS Safety Report 14164839 (Version 1)
Quarter: 2017Q4

REPORT INFORMATION
  Report Type: Report from Study
  Country: US (occurrence: US)
  Receive Date: 20171107
  Receipt Date: 20171107
  Transmission Date: 20180321
  Serious: Yes (Other)
  Sender: FDA-Public Use
  Company Number: US-ASTELLAS-2017US045162

PATIENT

DRUGS (3)
  1. QUINACRINE [Suspect]
     Active Substance: QUINACRINE
     Dosage: 50 MG, ONCE DAILY MAINTANANCE DOSE FOR 21 DAYS
     Route: 048
  2. ERLOTINIB [Suspect]
     Active Substance: ERLOTINIB
     Indication: NON-SMALL CELL LUNG CANCER
     Dosage: UNK, UNKNOWN FREQ.
     Route: 048
  3. QUINACRINE [Suspect]
     Active Substance: QUINACRINE
     Indication: NON-SMALL CELL LUNG CANCER
     Dosage: 50 MG, THRICE DAILY (LOADING DOSE: DAY 1 OF CYCLE 1)
     Route: 048

REACTIONS (2)
  - Rash maculo-papular [Recovered/Resolved]
  - Lymphocyte count decreased [Unknown]
